FAERS Safety Report 23283989 (Version 2)
Quarter: 2024Q1

REPORT INFORMATION
  Report Type: Report from Study
  Country: US (occurrence: US)
  Receive Date: 20231211
  Receipt Date: 20240123
  Transmission Date: 20240410
  Serious: Yes (Death, Hospitalization, Other)
  Sender: FDA-Public Use
  Company Number: US-MIRATI-MT2023PM05493

PATIENT
  Sex: Female
  Weight: 62.132 kg

DRUGS (1)
  1. KRAZATI [Suspect]
     Active Substance: ADAGRASIB
     Indication: Lung neoplasm malignant
     Dosage: 600 MG, BID
     Route: 048
     Dates: start: 20231114, end: 20231122

REACTIONS (3)
  - Death [Fatal]
  - Unresponsive to stimuli [Unknown]
  - Illness [Unknown]

NARRATIVE: CASE EVENT DATE: 20231101
